FAERS Safety Report 7701144-9 (Version None)
Quarter: 2011Q3

REPORT INFORMATION
  Report Type: 
  Country: None (occurrence: None)
  Receive Date: 20110822
  Receipt Date: 20101228
  Transmission Date: 20111222
  Serious: Yes (Other)
  Sender: FDA-Public Use
  Company Number: US-BAYER-200710791BWH

PATIENT
  Age: 59 Year
  Sex: Female

DRUGS (9)
  1. TOPROL-XL [Concomitant]
     Indication: HYPERTENSION
  2. BEVACIZUMAB [Suspect]
     Indication: MALIGNANT MELANOMA
     Dosage: UNK
     Dates: start: 20060301, end: 20060401
  3. NEXAVAR [Suspect]
     Indication: MALIGNANT MELANOMA
     Dosage: 200 MG, BID
     Route: 048
     Dates: start: 20060501
  4. NORVASC [Concomitant]
     Indication: HYPERTENSION
     Dosage: UNK
  5. VALSARTAN [Concomitant]
     Indication: HYPERTENSION
     Dosage: UNK
  6. PRILOSEC [Concomitant]
     Dosage: UNK
  7. HYDROCHLOROTHIAZIDE [Concomitant]
     Indication: HYPERTENSION
     Dosage: UNK
  8. NEXAVAR [Suspect]
     Dosage: 200 MG, BID
     Route: 048
     Dates: start: 20060501
  9. NEXAVAR [Suspect]
     Dosage: DAILY DOSE 400 MG
     Route: 048
     Dates: start: 20080101

REACTIONS (8)
  - DRY SKIN [None]
  - RASH [None]
  - COLON NEOPLASM [None]
  - PHOTOSENSITIVITY ALLERGIC REACTION [None]
  - DIARRHOEA [None]
  - ACNE [None]
  - BLISTER [None]
  - HYPERTENSION [None]
